FAERS Safety Report 14007937 (Version 1)
Quarter: 2017Q3

REPORT INFORMATION
  Report Type: Spontaneous
  Country: US (occurrence: US)
  Receive Date: 20170925
  Receipt Date: 20170925
  Transmission Date: 20171128
  Serious: Yes (Hospitalization, Other)
  Sender: FDA-Public Use
  Company Number: US-GLAXOSMITHKLINE-US2017GSK147523

PATIENT
  Age: 78 Year
  Sex: Female

DRUGS (3)
  1. LISINOPRIL. [Concomitant]
     Active Substance: LISINOPRIL
  2. BENLYSTA [Suspect]
     Active Substance: BELIMUMAB
     Indication: SYSTEMIC LUPUS ERYTHEMATOSUS
     Dosage: UNK UNK, CYC
  3. ATENOLOL. [Concomitant]
     Active Substance: ATENOLOL

REACTIONS (7)
  - Joint swelling [Not Recovered/Not Resolved]
  - Intestinal obstruction [Recovered/Resolved]
  - Pain [Not Recovered/Not Resolved]
  - Urinary tract infection [Recovered/Resolved]
  - Musculoskeletal pain [Not Recovered/Not Resolved]
  - Headache [Unknown]
  - Pain in extremity [Not Recovered/Not Resolved]

NARRATIVE: CASE EVENT DATE: 20170628
